FAERS Safety Report 14321083 (Version 1)
Quarter: 2017Q4

REPORT INFORMATION
  Report Type: Spontaneous
  Country: IT (occurrence: IT)
  Receive Date: 20171223
  Receipt Date: 20171223
  Transmission Date: 20180321
  Serious: Yes (Hospitalization)
  Sender: FDA-Public Use
  Company Number: IT-CIPLA LTD.-2017IT23842

PATIENT

DRUGS (8)
  1. PACLITAXEL. [Suspect]
     Active Substance: PACLITAXEL
     Indication: OVARIAN CANCER
     Dosage: 270 MG, UNK, CYCLICAL
     Route: 041
     Dates: start: 20170508, end: 20170825
  2. TIROSINT [Concomitant]
     Active Substance: LEVOTHYROXINE SODIUM
     Dosage: 100 MICROGRAMS/ML ORAL DROPS SOLUTION 20 ML BOTTLE
     Route: 048
  3. AVASTIN [Suspect]
     Active Substance: BEVACIZUMAB
     Dosage: 825 MG, UNK, 1 X 400 MG VIAL; CYCLICAL
     Route: 042
     Dates: start: 20170530, end: 20170825
  4. CARBOPLATIN. [Suspect]
     Active Substance: CARBOPLATIN
     Indication: OVARIAN CANCER
     Dosage: 580 MG, UNK, CYCLICAL
     Route: 041
     Dates: start: 20170508, end: 20170825
  5. AVASTIN [Suspect]
     Active Substance: BEVACIZUMAB
     Indication: OVARIAN CANCER
     Dosage: 825 MG, UNK, CYCLICAL
     Route: 042
     Dates: start: 20170508
  6. DECADRON (ITALY) [Concomitant]
     Dosage: UNK
     Route: 065
  7. ZOFRAN [Concomitant]
     Active Substance: ONDANSETRON HYDROCHLORIDE
     Dosage: UNK
     Route: 042
  8. LONQUEX [Concomitant]
     Active Substance: LIPEGFILGRASTIM
     Dosage: UNK
     Route: 058

REACTIONS (2)
  - Venous thrombosis [Recovered/Resolved]
  - Embolism venous [Unknown]

NARRATIVE: CASE EVENT DATE: 20170825
